FAERS Safety Report 12453461 (Version 8)
Quarter: 2017Q1

REPORT INFORMATION
  Report Type: Spontaneous
  Country: US (occurrence: US)
  Receive Date: 20160609
  Receipt Date: 20170213
  Transmission Date: 20170428
  Serious: Yes (Death, Hospitalization)
  Sender: FDA-Public Use
  Company Number: US-ACTELION-A-NJ2016-137338

PATIENT
  Age: 48 Year
  Sex: Male

DRUGS (5)
  1. COUMADIN [Concomitant]
     Active Substance: WARFARIN SODIUM
  2. TRACLEER [Suspect]
     Active Substance: BOSENTAN
     Indication: PULMONARY ARTERIAL HYPERTENSION
     Dosage: 125 MG, BID
     Route: 048
     Dates: start: 20160411
  3. REMODULIN [Concomitant]
     Active Substance: TREPROSTINIL
  4. TYVASO [Concomitant]
     Active Substance: TREPROSTINIL
  5. SILDENAFIL. [Concomitant]
     Active Substance: SILDENAFIL

REACTIONS (13)
  - Localised oedema [Unknown]
  - Catheter site infection [Unknown]
  - Death [Fatal]
  - Back disorder [Unknown]
  - Dyspnoea [Unknown]
  - Abdominal pain upper [Unknown]
  - Malaise [Unknown]
  - Suture rupture [Unknown]
  - Cardiac discomfort [Unknown]
  - Fluid retention [Unknown]
  - Oedema peripheral [Unknown]
  - Paracentesis [Unknown]
  - Gastrointestinal disorder [Unknown]

NARRATIVE: CASE EVENT DATE: 20170207
